FAERS Safety Report 8424488-4 (Version None)
Quarter: 2012Q2

REPORT INFORMATION
  Report Type: 
  Country: None (occurrence: None)
  Receive Date: 20120611
  Receipt Date: 20120607
  Transmission Date: 20120825
  Serious: Yes (Hospitalization, Other)
  Sender: FDA-Public Use
  Company Number: AU-AMGEN-AUSSP2012034083

PATIENT
  Age: 76 Year
  Sex: Male

DRUGS (7)
  1. VITAMIN D [Concomitant]
  2. ZOLADEX [Concomitant]
     Dosage: 10.8 MG, Q3MO
  3. ORTERONEL [Concomitant]
     Indication: PROSTATE CANCER
     Dosage: UNK
     Dates: end: 20120318
  4. XGEVA [Suspect]
     Indication: METASTASES TO BONE
     Dosage: 120 MG, QMO
     Dates: start: 20111230
  5. CHOLECALCIFEROL [Concomitant]
     Dosage: UNK UNIT, UNK
  6. CALCIUM CARBONATE [Concomitant]
     Dosage: 1200 MG, UNK
  7. IRBESARTAN + HYDROCHLOROTHIAZIDE [Concomitant]
     Dosage: UNK
     Dates: end: 20120325

REACTIONS (2)
  - HUNGRY BONE SYNDROME [None]
  - HYPOCALCAEMIA [None]
